FAERS Safety Report 9928538 (Version 2)
Quarter: 2015Q4

REPORT INFORMATION
  Report Type: Report from Study
  Country: US (occurrence: US)
  Receive Date: 20140227
  Receipt Date: 20151110
  Transmission Date: 20160305
  Serious: Yes (Other)
  Sender: FDA-Public Use
  Company Number: US-ROCHE-1336313

PATIENT
  Sex: Male

DRUGS (21)
  1. CYANOCOBALAMIN. [Concomitant]
     Active Substance: CYANOCOBALAMIN
     Dosage: INJECT 1 ML INTRAMUSCULARLY ONCE EVERY MONTH
     Route: 030
  2. PROPYLENE GLYCOL [Concomitant]
     Active Substance: PROPYLENE GLYCOL
     Dosage: TID OU (0.4%-0.3% EYE DROPPERETTE)
     Route: 047
  3. CHOLECALCIFEROL [Concomitant]
     Active Substance: CHOLECALCIFEROL
     Dosage: TAKE ONE TABLET DAILY
     Route: 065
  4. METFORMIN HYDROCHLORIDE. [Concomitant]
     Active Substance: METFORMIN HYDROCHLORIDE
     Dosage: 750 MG BEFORE LUNCH AND 250 MG BEFORE DINNER
     Route: 065
  5. AVASTIN [Suspect]
     Active Substance: BEVACIZUMAB
     Indication: PRODUCT USED FOR UNKNOWN INDICATION
     Route: 065
  6. SODIUM CHLORIDE. [Concomitant]
     Active Substance: SODIUM CHLORIDE
     Dosage: 1 DROP, THREE TIMES DAILY TO BOTH EYES
     Route: 047
  7. GLIMEPIRIDE. [Concomitant]
     Active Substance: GLIMEPIRIDE
     Dosage: TAKE ONE TABLET DAILY
     Route: 065
  8. LUCENTIS [Suspect]
     Active Substance: RANIBIZUMAB
     Indication: CYSTOID MACULAR OEDEMA
     Route: 050
  9. CYANOCOBALAMIN. [Concomitant]
     Active Substance: CYANOCOBALAMIN
     Dosage: 1 TAB PO DAILY
     Route: 048
  10. POVIDONE [Concomitant]
     Active Substance: POVIDONE
     Route: 065
  11. LIDOCAINE. [Concomitant]
     Active Substance: LIDOCAINE
     Route: 061
  12. LUCENTIS [Suspect]
     Active Substance: RANIBIZUMAB
     Indication: DIABETIC RETINAL OEDEMA
  13. LEVOTHYROXINE. [Concomitant]
     Active Substance: LEVOTHYROXINE
     Dosage: 1 TAB PO ONCE DAILY
     Route: 048
  14. HYDROCHLOROTHIAZIDE. [Concomitant]
     Active Substance: HYDROCHLOROTHIAZIDE
     Route: 048
  15. VITAMIN B COMPLEX [Concomitant]
     Active Substance: CYANOCOBALAMIN\DEXPANTHENOL\NIACINAMIDE\PYRIDOXINE HYDROCHLORIDE\RIBOFLAVIN 5^-PHOSPHATE SODIUM\THIAMINE HYDROCHLORIDE\VITAMIN B COMPLEX
     Dosage: 1 TAB PO DAILY
     Route: 048
  16. RANITIDINE HCL [Concomitant]
     Active Substance: RANITIDINE HYDROCHLORIDE
     Dosage: TAKE ONE TABLET DAILY
     Route: 065
  17. RAMIPRIL. [Concomitant]
     Active Substance: RAMIPRIL
     Dosage: TAKE ONE TABLET DAILY
     Route: 065
  18. LUCENTIS [Suspect]
     Active Substance: RANIBIZUMAB
     Indication: DIABETIC RETINOPATHY
  19. GENTAMICIN. [Concomitant]
     Active Substance: GENTAMICIN
     Dosage: ONE DROP IN BOTH EYES QID FOR 4 DAYS
     Route: 047
  20. CLOPIDOGREL BISULFATE. [Concomitant]
     Active Substance: CLOPIDOGREL BISULFATE
     Dosage: TAKE ONE TABLET DAILY
     Route: 065
  21. ASPIRIN. [Concomitant]
     Active Substance: ASPIRIN
     Dosage: TAKE ONE TABLET DAILY
     Route: 065

REACTIONS (9)
  - Erythema of eyelid [Recovering/Resolving]
  - Gastritis [Unknown]
  - Ocular hypertension [Unknown]
  - Eyelid skin dryness [Unknown]
  - Dyspnoea [Unknown]
  - Eyelid oedema [Recovering/Resolving]
  - Hypertension [Unknown]
  - Vitreous detachment [Unknown]
  - Eyelid irritation [Unknown]
